FAERS Safety Report 15629967 (Version 1)
Quarter: 2018Q4

REPORT INFORMATION
  Report Type: Spontaneous
  Country: GB (occurrence: GB)
  Receive Date: 20181117
  Receipt Date: 20181117
  Transmission Date: 20190205
  Serious: Yes (Disabling, Other)
  Sender: FDA-Public Use
  Company Number: GB-009507513-1811GBR005195

PATIENT
  Age: 24 Year
  Sex: Male
  Weight: 88 kg

DRUGS (2)
  1. FINASTERIDE. [Suspect]
     Active Substance: FINASTERIDE
     Indication: ALOPECIA
     Dosage: 1 MILLIGRAM
     Route: 048
     Dates: start: 20180903, end: 20181023
  2. PROPANOL [Concomitant]
     Active Substance: PROPRANOLOL HYDROCHLORIDE

REACTIONS (2)
  - Anxiety [Not Recovered/Not Resolved]
  - Depression suicidal [Not Recovered/Not Resolved]
